FAERS Safety Report 7809820-4 (Version None)
Quarter: 2011Q4

REPORT INFORMATION
  Report Type: 
  Country: None (occurrence: None)
  Receive Date: 20111012
  Receipt Date: 20111007
  Transmission Date: 20120403
  Serious: Yes (Hospitalization)
  Sender: FDA-Public Use
  Company Number: FR-PFIZER INC-2011239505

PATIENT
  Age: 50 Year
  Sex: Male

DRUGS (11)
  1. OXAZEPAM [Concomitant]
  2. SOLU-MEDROL [Suspect]
     Dosage: UNK
     Route: 042
     Dates: start: 20110907
  3. AOTAL [Concomitant]
  4. TERCIAN [Concomitant]
  5. CALCIUM GLUCONATE [Suspect]
     Indication: NEUROTOXICITY
     Dosage: 1000 MG, CYCLIC
     Route: 042
     Dates: start: 20110907
  6. MAGNESIUM SULFATE [Suspect]
     Indication: NEUROTOXICITY
     Dosage: 1500 MG, CYCLIC
     Route: 042
     Dates: start: 20110907
  7. BACLOFEN [Concomitant]
  8. ACETAMINOPHEN [Concomitant]
  9. ACETAMINOPHEN AND TRAMADOL HCL [Concomitant]
  10. ONDANSETRON [Suspect]
     Dosage: UNK
     Route: 042
     Dates: start: 20110907
  11. OXALIPLATIN [Concomitant]

REACTIONS (2)
  - PYREXIA [None]
  - CHILLS [None]
